FAERS Safety Report 7342205-6 (Version None)
Quarter: 2011Q1

REPORT INFORMATION
  Report Type: 
  Country: None (occurrence: None)
  Receive Date: 20110310
  Receipt Date: 20110301
  Transmission Date: 20110831
  Serious: Yes (Other)
  Sender: FDA-Public Use
  Company Number: BR-AMGEN-BRASP2011011790

PATIENT
  Age: 43 Year
  Sex: Male
  Weight: 77 kg

DRUGS (3)
  1. ENBREL [Suspect]
     Indication: RHEUMATOID ARTHRITIS
     Dosage: UNK UNK, 2 TIMES/WK
     Route: 058
     Dates: start: 20101101, end: 20110225
  2. EUTHYROX [Concomitant]
     Indication: HYPOTHYROIDISM
     Dosage: 50 MG, QD
     Dates: start: 20050101
  3. PANTOZOL                           /01263202/ [Concomitant]
     Indication: GASTRITIS
     Dosage: 20 MG, QD
     Dates: start: 20101001

REACTIONS (12)
  - MYALGIA [None]
  - NEUTROPHIL PERCENTAGE INCREASED [None]
  - FOOD POISONING [None]
  - INCORRECT STORAGE OF DRUG [None]
  - SPEECH DISORDER [None]
  - INFECTION [None]
  - IMMUNODEFICIENCY [None]
  - HEADACHE [None]
  - PALLOR [None]
  - INJECTION SITE ERYTHEMA [None]
  - PYREXIA [None]
  - MUSCLE RIGIDITY [None]
